FAERS Safety Report 6329924-5 (Version None)
Quarter: 2009Q3

REPORT INFORMATION
  Report Type: 
  Country: None (occurrence: None)
  Receive Date: 20090825
  Receipt Date: 20090815
  Transmission Date: 20100115
  Serious: Yes (Hospitalization, Disabling)
  Sender: FDA-Public Use
  Company Number: 2009007986

PATIENT
  Age: 64 Year
  Sex: Male

DRUGS (7)
  1. TREANDA [Suspect]
     Indication: MANTLE CELL LYMPHOMA
     Dosage: (120 MG,CYCLICAL), INTRAVENOUS
     Route: 042
     Dates: start: 20090614
  2. RITUXAN [Suspect]
     Indication: MANTLE CELL LYMPHOMA
     Dosage: (650 MG,UID/QD)
     Dates: start: 20090613, end: 20090613
  3. CYTARABINE [Suspect]
     Dosage: (1300 MG,UID/QD), INTRAVENOUS (NOT OTHERWISE SPECIFIED)
     Route: 042
     Dates: start: 20090614, end: 20090616
  4. CIPROFLOXACIN [Concomitant]
  5. FLUCONAZOLE [Concomitant]
  6. HEPARIN [Concomitant]
  7. LAMIVUDINE [Concomitant]

REACTIONS (2)
  - MYOCARDIAL INFARCTION [None]
  - PERICARDIAL EFFUSION [None]
